FAERS Safety Report 9444173 (Version 1)
Quarter: 2013Q3

REPORT INFORMATION
  Report Type: Spontaneous
  Country: US (occurrence: US)
  Receive Date: 20130807
  Receipt Date: 20130807
  Transmission Date: 20140515
  Serious: Yes (Hospitalization)
  Sender: FDA-Public Use
  Company Number: US-MERCK-1308USA000093

PATIENT
  Sex: Female

DRUGS (6)
  1. PEGINTRON [Suspect]
     Dosage: 107 MICROGRAM, QW
     Route: 058
  2. REBETOL [Suspect]
     Route: 048
  3. VICTRELIS [Suspect]
     Dosage: 800 MG (4 CAPSULES) BY MOUTH THREE TIMES A DAY FOR 44 WEEKS
     Route: 048
  4. ONDANSETRON [Concomitant]
     Route: 048
  5. OMEPRAZOLE [Concomitant]
     Route: 048
  6. VITAMINS (UNSPECIFIED) [Concomitant]
     Route: 048

REACTIONS (6)
  - Decreased appetite [Unknown]
  - Nausea [Unknown]
  - Vomiting [Unknown]
  - Red blood cell count decreased [Unknown]
  - Blood potassium decreased [Unknown]
  - Gastrointestinal tube insertion [Unknown]
